FAERS Safety Report 5330588-8 (Version None)
Quarter: 2007Q2

REPORT INFORMATION
  Report Type: 
  Country: None (occurrence: None)
  Receive Date: 20070516
  Receipt Date: 20070508
  Transmission Date: 20071010
  Serious: Yes (Hospitalization)
  Sender: FDA-Public Use
  Company Number: E2090-00237-SPO-JP

PATIENT
  Age: 23 Year
  Sex: Male

DRUGS (3)
  1. ZONISAMIDE [Suspect]
     Indication: CONVULSION
     Dosage: ORAL
     Route: 048
     Dates: start: 20060624, end: 20060802
  2. FLOMOX (CEFCAPENE PIVOXIL HYDROCHLORIDE) [Concomitant]
  3. LEVOFLOXACIN [Concomitant]

REACTIONS (11)
  - ALANINE AMINOTRANSFERASE INCREASED [None]
  - ASPARTATE AMINOTRANSFERASE INCREASED [None]
  - DERMATITIS EXFOLIATIVE [None]
  - DRUG HYPERSENSITIVITY [None]
  - DRUG RASH WITH EOSINOPHILIA AND SYSTEMIC SYMPTOMS [None]
  - EPILEPSY [None]
  - HEADACHE [None]
  - INFECTIOUS MONONUCLEOSIS [None]
  - LIVER DISORDER [None]
  - PROSTATITIS [None]
  - RENAL IMPAIRMENT [None]
